FAERS Safety Report 7046537-0 (Version None)
Quarter: 2010Q4

REPORT INFORMATION
  Report Type: 
  Country: None (occurrence: None)
  Receive Date: 20101015
  Receipt Date: 20101006
  Transmission Date: 20110411
  Serious: Yes (Hospitalization)
  Sender: FDA-Public Use
  Company Number: US-BIOGENIDEC-2010BI024679

PATIENT
  Age: 67 Year
  Sex: Female

DRUGS (1)
  1. TYSABRI [Suspect]
     Indication: MULTIPLE SCLEROSIS
     Route: 042
     Dates: start: 20090310, end: 20100615

REACTIONS (5)
  - HAEMOGLOBIN ABNORMAL [None]
  - MULTIPLE SCLEROSIS RELAPSE [None]
  - RESPIRATORY FAILURE [None]
  - SEPSIS [None]
  - UROSEPSIS [None]
